FAERS Safety Report 11805181 (Version 3)
Quarter: 2016Q1

REPORT INFORMATION
  Report Type: Spontaneous
  Country: JP (occurrence: JP)
  Receive Date: 20151206
  Receipt Date: 20160228
  Transmission Date: 20160525
  Serious: Yes (Hospitalization)
  Sender: FDA-Public Use
  Company Number: JP-MYLANLABS-2015M1043181

PATIENT

DRUGS (4)
  1. FLUOROURACIL. [Suspect]
     Active Substance: FLUOROURACIL
     Indication: TRIPLE NEGATIVE BREAST CANCER
     Dosage: 500 MG/M2
     Route: 065
  2. EPIRUBICIN MYLAN [Suspect]
     Active Substance: EPIRUBICIN
     Indication: TRIPLE NEGATIVE BREAST CANCER
     Dosage: 100 MG/M2
     Route: 065
  3. DOCETAXEL. [Suspect]
     Active Substance: DOCETAXEL
     Indication: TRIPLE NEGATIVE BREAST CANCER
     Route: 065
  4. CYCLOPHOSPHAMIDE. [Suspect]
     Active Substance: CYCLOPHOSPHAMIDE
     Indication: TRIPLE NEGATIVE BREAST CANCER
     Dosage: 500 MG/M2
     Route: 065

REACTIONS (3)
  - Miller Fisher syndrome [Recovering/Resolving]
  - Upper respiratory tract infection [Recovering/Resolving]
  - Nausea [Unknown]
